FAERS Safety Report 24197433 (Version 1)
Quarter: 2024Q3

REPORT INFORMATION
  Report Type: Other
  Country: GB (occurrence: GB)
  Receive Date: 20240811
  Receipt Date: 20240811
  Transmission Date: 20241017
  Serious: Yes (Other)
  Sender: GLENMARK
  Company Number: None

PATIENT

DRUGS (1)
  1. ROPINIROLE HYDROCHLORIDE [Suspect]
     Active Substance: ROPINIROLE HYDROCHLORIDE
     Indication: Restless legs syndrome
     Dosage: 1 MILLIGRAM (1 MG)
     Route: 065

REACTIONS (2)
  - Medication error [Unknown]
  - Restless leg augmentation syndrome [Not Recovered/Not Resolved]
